FAERS Safety Report 6725563-2 (Version None)
Quarter: 2010Q2

REPORT INFORMATION
  Report Type: 
  Country: None (occurrence: None)
  Receive Date: 20100514
  Receipt Date: 20100504
  Transmission Date: 20101027
  Serious: Yes (Death, Life-Threatening)
  Sender: FDA-Public Use
  Company Number: SE-PFIZER INC-2010055754

PATIENT
  Age: 84 Year
  Sex: Female

DRUGS (19)
  1. PREDNISOLONE [Suspect]
     Indication: PALLIATIVE CARE
     Dosage: 30 MG, UNK
     Dates: start: 20100120
  2. WARAN [Suspect]
     Dosage: UNK
     Route: 048
     Dates: end: 20100122
  3. VAGIFEM [Concomitant]
     Dosage: UNK
  4. ATACAND [Concomitant]
     Dosage: UNK
  5. UK-88,525 [Concomitant]
     Dosage: UNK
  6. NEORECORMON ^BOEHRINGER MANNHEIM^ [Concomitant]
     Dosage: UNK
  7. OMEPRAZOLE [Concomitant]
     Dosage: UNK
  8. FELODIPINE [Concomitant]
     Dosage: UNK
  9. MIRTAZAPINE [Concomitant]
     Dosage: UNK
  10. CALCICHEW-D3 [Concomitant]
     Dosage: UNK
  11. ACETAMINOPHEN [Concomitant]
     Dosage: UNK
  12. BEHEPAN [Concomitant]
     Dosage: UNK
  13. DIAZEPAM [Concomitant]
     Dosage: UNK
  14. KALEORID [Concomitant]
     Dosage: UNK
  15. MORFIN [Concomitant]
     Dosage: UNK
  16. SODIUM HYDROGEN CARBONATE [Concomitant]
     Dosage: UNK
  17. ETALPHA [Concomitant]
     Dosage: UNK
  18. FURIX [Concomitant]
     Dosage: UNK
  19. ALLOPURINOL ^NORDIC^ [Concomitant]
     Dosage: UNK

REACTIONS (1)
  - GASTROINTESTINAL HAEMORRHAGE [None]
